FAERS Safety Report 25821627 (Version 1)
Quarter: 2025Q3

REPORT INFORMATION
  Report Type: Spontaneous
  Country: CN (occurrence: CN)
  Receive Date: 20250919
  Receipt Date: 20250919
  Transmission Date: 20251021
  Serious: Yes (Life-Threatening, Hospitalization, Other)
  Sender: Onesource Specialty Pharma
  Company Number: CN-STRIDES ARCOLAB LIMITED-2025OS000716

PATIENT
  Age: 62 Year
  Sex: Female
  Weight: 45 kg

DRUGS (3)
  1. MIDAZOLAM [Interacting]
     Active Substance: MIDAZOLAM
     Indication: Sedation
     Route: 042
  2. FENTANYL CITRATE [Interacting]
     Active Substance: FENTANYL CITRATE
     Indication: Analgesic therapy
     Route: 042
  3. LIDOCAINE [Concomitant]
     Active Substance: LIDOCAINE
     Indication: Anaesthesia
     Route: 065

REACTIONS (3)
  - Transient global amnesia [None]
  - Respiratory depression [None]
  - Drug interaction [None]
